FAERS Safety Report 26086763 (Version 1)
Quarter: 2025Q4

REPORT INFORMATION
  Report Type: Spontaneous
  Country: US (occurrence: None)
  Receive Date: 20251124
  Receipt Date: 20251124
  Transmission Date: 20260118
  Serious: Yes (Other)
  Sender: FDA-CTU
  Company Number: None

PATIENT
  Age: 45 Year
  Sex: Female
  Weight: 62.55 kg

DRUGS (11)
  1. DUPIXENT [Suspect]
     Active Substance: DUPILUMAB
     Indication: Temperature intolerance
     Dosage: OTHER QUANTITY : 1 INJECTION(S);?OTHER FREQUENCY : EVERY14 DAYS;?
     Route: 058
     Dates: start: 20251109, end: 20251109
  2. DUPIXENT [Suspect]
     Active Substance: DUPILUMAB
     Indication: Flushing
  3. DUPIXENT [Suspect]
     Active Substance: DUPILUMAB
     Indication: Hypersensitivity
  4. METOPROLOL TARTRATE [Concomitant]
     Active Substance: METOPROLOL TARTRATE
  5. MIRTAZAPINE [Concomitant]
     Active Substance: MIRTAZAPINE
  6. LEVOTHYROXINE [Concomitant]
     Active Substance: LEVOTHYROXINE
  7. CLARITIN [Concomitant]
     Active Substance: LORATADINE
  8. VITAMIN D [Concomitant]
     Active Substance: VITAMIN D NOS
  9. CALCIUM [Concomitant]
     Active Substance: CALCIUM
  10. VITAMIN K [Concomitant]
     Active Substance: PHYTONADIONE
  11. MELATONIN [Concomitant]
     Active Substance: MELATONIN

REACTIONS (9)
  - Injection related reaction [None]
  - Abdominal pain [None]
  - Pain in jaw [None]
  - Toothache [None]
  - Arthralgia [None]
  - Neck pain [None]
  - Chills [None]
  - Pruritus [None]
  - Bone pain [None]

NARRATIVE: CASE EVENT DATE: 20251109
